FAERS Safety Report 21448792 (Version 5)
Quarter: 2023Q1

REPORT INFORMATION
  Report Type: Report from Study
  Country: JP (occurrence: JP)
  Receive Date: 20221013
  Receipt Date: 20230213
  Transmission Date: 20230418
  Serious: Yes (Death, Hospitalization)
  Sender: FDA-Public Use
  Company Number: JP-JNJFOC-20220844223

PATIENT
  Age: 68 Year
  Sex: Male
  Weight: 60 kg

DRUGS (9)
  1. APALUTAMIDE [Suspect]
     Active Substance: APALUTAMIDE
     Indication: Prostate cancer metastatic
     Dosage: AFTER LUNCH
     Route: 048
     Dates: start: 20210816, end: 20221010
  2. ETOPOSIDE [Concomitant]
     Active Substance: ETOPOSIDE
     Indication: Prostate cancer metastatic
     Dosage: DOSE UNKNOWN
     Route: 065
     Dates: start: 20221107, end: 20221109
  3. CARBOPLATIN [Concomitant]
     Active Substance: CARBOPLATIN
     Indication: Prostate cancer metastatic
     Dosage: DOSE UNKNOWN
     Route: 065
     Dates: start: 20221107, end: 20221109
  4. DEGARELIX [Concomitant]
     Active Substance: DEGARELIX
     Indication: Prostate cancer metastatic
     Route: 065
     Dates: start: 20210326, end: 20210426
  5. DEGARELIX [Concomitant]
     Active Substance: DEGARELIX
     Indication: Prostate cancer metastatic
     Route: 065
     Dates: start: 20210427, end: 20220711
  6. FENTANYL [Concomitant]
     Active Substance: FENTANYL
     Indication: Hypoaesthesia
     Dosage: DOSE UNKNOWN
     Route: 065
     Dates: start: 20221013
  7. HYDROMORPHONE HYDROCHLORIDE [Concomitant]
     Active Substance: HYDROMORPHONE HYDROCHLORIDE
     Indication: Hypoaesthesia
     Dosage: DOSE UNKNOWN
     Route: 048
     Dates: start: 20221013
  8. CALONAL [Concomitant]
     Active Substance: ACETAMINOPHEN
     Indication: Hypoaesthesia
     Dosage: DOSE UNKNOWN
     Route: 048
     Dates: start: 20221013
  9. PREGABALIN [Concomitant]
     Active Substance: PREGABALIN
     Indication: Hypoaesthesia
     Dosage: DOSE UNKNOWN
     Route: 065
     Dates: start: 20221013

REACTIONS (6)
  - Prostate cancer metastatic [Fatal]
  - COVID-19 pneumonia [Unknown]
  - Hydronephrosis [Not Recovered/Not Resolved]
  - Hypoaesthesia [Not Recovered/Not Resolved]
  - Hot flush [Recovered/Resolved]
  - Urinary tract infection [Unknown]

NARRATIVE: CASE EVENT DATE: 20210823
